FAERS Safety Report 6290825-2 (Version None)
Quarter: 2009Q3

REPORT INFORMATION
  Report Type: 
  Country: None (occurrence: None)
  Receive Date: 20090730
  Receipt Date: 20090722
  Transmission Date: 20100115
  Serious: Yes (Hospitalization, Other)
  Sender: FDA-Public Use
  Company Number: AU-AMGEN-US198659

PATIENT
  Sex: Male

DRUGS (5)
  1. PANITUMUMAB [Suspect]
     Indication: COLORECTAL CANCER
     Route: 042
     Dates: start: 20061009
  2. PANITUMUMAB [Suspect]
     Route: 042
     Dates: start: 20061023, end: 20061023
  3. PANITUMUMAB [Suspect]
     Route: 042
     Dates: start: 20061120
  4. IRINOTECAN HCL [Suspect]
     Route: 042
  5. FLUOROURACIL [Suspect]
     Route: 042

REACTIONS (7)
  - CATHETER RELATED INFECTION [None]
  - DEHYDRATION [None]
  - DIARRHOEA [None]
  - HYPERTENSION [None]
  - HYPOXIA [None]
  - PLEURAL EFFUSION [None]
  - PYREXIA [None]
